FAERS Safety Report 16028571 (Version 1)
Quarter: 2019Q1

REPORT INFORMATION
  Report Type: Spontaneous
  Country: JP (occurrence: JP)
  Receive Date: 20190304
  Receipt Date: 20190304
  Transmission Date: 20190418
  Serious: Yes (Other)
  Sender: FDA-Public Use
  Company Number: JP-ROCHE-2273185

PATIENT
  Age: 2 Year
  Sex: Male
  Weight: 11.2 kg

DRUGS (2)
  1. FOSCARNET SODIUM. [Suspect]
     Active Substance: FOSCARNET SODIUM
     Indication: CYTOMEGALOVIRUS INFECTION
     Route: 065
     Dates: start: 20190105, end: 20190110
  2. GANCICLOVIR. [Suspect]
     Active Substance: GANCICLOVIR
     Indication: PRODUCT USED FOR UNKNOWN INDICATION
     Route: 065
     Dates: start: 20181205, end: 20181228

REACTIONS (2)
  - Cytomegalovirus infection [Recovered/Resolved]
  - White blood cell count increased [Recovered/Resolved]
